FAERS Safety Report 6670946-2 (Version None)
Quarter: 2010Q2

REPORT INFORMATION
  Report Type: 
  Country: None (occurrence: None)
  Receive Date: 20100406
  Receipt Date: 20100406
  Transmission Date: 20101027
  Serious: Yes (Hospitalization)
  Sender: FDA-Public Use
  Company Number: None

PATIENT
  Sex: Male
  Weight: 79.9 kg

DRUGS (2)
  1. CISPLATIN [Suspect]
     Dosage: 150 MG
     Dates: end: 20100322
  2. VINORELBINE TARTRATE [Suspect]
     Dosage: 60 MG
     Dates: end: 20100329

REACTIONS (2)
  - DIARRHOEA [None]
  - FEBRILE NEUTROPENIA [None]
